FAERS Safety Report 8727417 (Version 4)
Quarter: 2013Q1

REPORT INFORMATION
  Report Type: Spontaneous
  Country: BR (occurrence: BR)
  Receive Date: 20120816
  Receipt Date: 20130128
  Transmission Date: 20140127
  Serious: Yes (Hospitalization, Other)
  Sender: FDA-Public Use
  Company Number: BR-ROCHE-1101520

PATIENT
  Sex: Male

DRUGS (6)
  1. XOLAIR [Suspect]
     Indication: CHRONIC OBSTRUCTIVE PULMONARY DISEASE
     Route: 065
  2. XOLAIR [Suspect]
     Indication: ASTHMA
     Route: 065
     Dates: start: 2010
  3. XOLAIR [Suspect]
     Route: 065
     Dates: start: 20120824
  4. SYMBICORT [Concomitant]
     Dosage: 12/400 MG
     Route: 065
     Dates: start: 200407
  5. BUDECORT [Concomitant]
     Route: 065
     Dates: start: 2006
  6. PREDNISONE [Concomitant]
     Route: 065
     Dates: start: 2004

REACTIONS (8)
  - Sciatic nerve injury [Recovering/Resolving]
  - Malaise [Recovering/Resolving]
  - Asthmatic crisis [Recovered/Resolved]
  - Wheezing [Recovering/Resolving]
  - Cough [Recovering/Resolving]
  - Swelling [Recovered/Resolved]
  - Bone disorder [Unknown]
  - Fluid retention [Unknown]
